FAERS Safety Report 19017049 (Version 1)
Quarter: 2021Q1

REPORT INFORMATION
  Report Type: Spontaneous
  Country: US (occurrence: US)
  Receive Date: 20210316
  Receipt Date: 20210316
  Transmission Date: 20210420
  Serious: Yes (Other)
  Sender: FDA-Public Use
  Company Number: None

PATIENT
  Age: 65 Year
  Sex: Male
  Weight: 92.99 kg

DRUGS (1)
  1. BUPRENORPHINE?NALOXONE [Suspect]
     Active Substance: BUPRENORPHINE HYDROCHLORIDE\NALOXONE HYDROCHLORIDE
     Indication: DRUG DEPENDENCE
     Route: 060
     Dates: start: 20210217

REACTIONS (3)
  - Product substitution issue [None]
  - Feeling hot [None]
  - Pruritus [None]

NARRATIVE: CASE EVENT DATE: 20210217
